FAERS Safety Report 13546748 (Version 7)
Quarter: 2017Q4

REPORT INFORMATION
  Report Type: Report from Study
  Country: AU (occurrence: AU)
  Receive Date: 20170515
  Receipt Date: 20171030
  Transmission Date: 20180320
  Serious: Yes (Death, Life-Threatening, Other)
  Sender: FDA-Public Use
  Company Number: AU-AMGEN-AUSNI2017072881

PATIENT
  Age: 14 Year
  Sex: Male

DRUGS (36)
  1. BLINATUMOMAB [Suspect]
     Active Substance: BLINATUMOMAB
     Indication: ACUTE LYMPHOCYTIC LEUKAEMIA RECURRENT
     Dosage: 28 MUG, QD
     Route: 042
     Dates: start: 20170225, end: 20170325
  2. MAGNESIUM ASPARTATE [Concomitant]
     Active Substance: MAGNESIUM ASPARTATE
     Dosage: 1500 TO 2000 MG, QD
  3. HYDROCORTISONE. [Concomitant]
     Active Substance: HYDROCORTISONE
     Dosage: 50 MG TO 100 MG, UNK
     Dates: end: 20170610
  4. SODIUM BICARBONATE. [Concomitant]
     Active Substance: SODIUM BICARBONATE
     Dosage: UNK
     Route: 061
  5. COLOXYL WITH SENNA [Concomitant]
     Active Substance: DOCUSATE\SENNOSIDES
     Dosage: UNK
  6. ALLOPURINOL. [Concomitant]
     Active Substance: ALLOPURINOL
     Dosage: 100 TO 200 MG, UNK
     Dates: end: 20170410
  7. PREGABALIN. [Concomitant]
     Active Substance: PREGABALIN
     Dosage: 25 TO 100 MG, UNK
     Dates: end: 20170529
  8. ALCOHOL. [Concomitant]
     Active Substance: ALCOHOL
     Dosage: 0.7 ML/1 ML, UNK
     Dates: end: 20170521
  9. PANTOPRAZOLE [Concomitant]
     Active Substance: PANTOPRAZOLE
     Dosage: 40 MG, QD
     Dates: end: 20170426
  10. LORATADINE. [Concomitant]
     Active Substance: LORATADINE
     Dosage: 10 MG, QD
  11. ALTEPLASE. [Concomitant]
     Active Substance: ALTEPLASE
     Dosage: 0.5 TO 1.5 ML (10 MG), UNK
     Dates: end: 20170530
  12. FRUSEMIDE [Concomitant]
     Active Substance: FUROSEMIDE
     Dosage: 40 MG, UNK
  13. VANCOMYCIN [Concomitant]
     Active Substance: VANCOMYCIN
     Dosage: 500 TO 700 MG, UNK
     Dates: end: 20170516
  14. POTASSIUM CHLORIDE. [Concomitant]
     Active Substance: POTASSIUM CHLORIDE
     Dosage: 2.4 G, UNK
  15. NYSTATIN. [Concomitant]
     Active Substance: NYSTATIN
     Dosage: 1 ML, UNK
  16. PROMETHAZINE [Concomitant]
     Active Substance: PROMETHAZINE\PROMETHAZINE HYDROCHLORIDE
     Dosage: 10 MG, UNK
     Dates: end: 20170409
  17. LACTULOSE. [Concomitant]
     Active Substance: LACTULOSE
     Dosage: 3.3 G/ 5 ML (20 ML), UNK
     Route: 048
     Dates: end: 20170529
  18. BLINATUMOMAB [Suspect]
     Active Substance: BLINATUMOMAB
     Dosage: 28 MUG, QD
     Route: 042
     Dates: start: 20170407, end: 20170708
  19. PARACETAMOL [Concomitant]
     Active Substance: ACETAMINOPHEN
     Dosage: 750 TO 1000 MG/100 ML, UNK
     Route: 042
  20. ONDANSETRON [Concomitant]
     Active Substance: ONDANSETRON
     Dosage: 8 MG, UNK
     Dates: end: 20170604
  21. SODIUM CHLORIDE. [Concomitant]
     Active Substance: SODIUM CHLORIDE
     Dosage: 60 MG/ 1 ML, UNK
     Dates: end: 20170426
  22. HYDROMORPHONE [Concomitant]
     Active Substance: HYDROMORPHONE
     Dosage: 2 MG, UNK
  23. KETAMINE [Concomitant]
     Active Substance: KETAMINE
     Dosage: 200 MG/2 ML, UNK
  24. SULFAMETHOXAZOLE W/TRIMETHOPRIM [Concomitant]
     Active Substance: SULFAMETHOXAZOLE\TRIMETHOPRIM
     Dosage: 400 MG + 80 MG TO 800 MG + 160 , UNK
  25. FRUSEMIDE [Concomitant]
     Active Substance: FUROSEMIDE
     Dosage: 10 MG TO 20 MG/2 ML, UNK
  26. HYPERSAL [Concomitant]
     Dosage: 60 MG/ML, UNK
  27. CHLORVESCENT [Concomitant]
     Active Substance: POTASSIUM CHLORIDE
     Dosage: UNK
     Dates: end: 20170511
  28. METHADONE [Concomitant]
     Active Substance: METHADONE HYDROCHLORIDE
     Dosage: 2.5 TO 10 MG, UNK
     Route: 048
     Dates: end: 20170602
  29. AMPHOTERICIN B, LIPOSOME [Concomitant]
     Active Substance: AMPHOTERICIN B
     Dosage: 50 TO 500 MG, UNK
     Dates: end: 20170428
  30. PIPERACILLIN AND TAZOBACTAM [Concomitant]
     Active Substance: PIPERACILLIN SODIUM\TAZOBACTAM SODIUM
     Dosage: 4G + 0.5G, UNK
     Dates: end: 20170529
  31. MEROPENEM. [Concomitant]
     Active Substance: MEROPENEM
     Dosage: 1 G, UNK
     Dates: end: 20170524
  32. MOVICOL [Concomitant]
     Active Substance: POLYETHYLENE GLYCOL 3350\POTASSIUM CHLORIDE\SODIUM BICARBONATE\SODIUM CHLORIDE
     Dosage: UNK
     Route: 048
  33. POTASSIUM CHLORIDE. [Concomitant]
     Active Substance: POTASSIUM CHLORIDE
     Dosage: 600 MG, UNK
     Dates: end: 20170514
  34. AMLODIPINE [Concomitant]
     Active Substance: AMLODIPINE BESYLATE
     Dosage: 5 MG, UNK
  35. CINCHOCAINE [Concomitant]
     Dosage: 5 MG/ 1 G, UNK
  36. ZINC OXIDE. [Concomitant]
     Active Substance: ZINC OXIDE
     Dosage: 200 MG/1 G, UNK

REACTIONS (3)
  - Cerebral haematoma [Not Recovered/Not Resolved]
  - Posterior reversible encephalopathy syndrome [Not Recovered/Not Resolved]
  - Sepsis [Recovered/Resolved]

NARRATIVE: CASE EVENT DATE: 20170422
